FAERS Safety Report 8514165-3 (Version None)
Quarter: 2012Q3

REPORT INFORMATION
  Report Type: 
  Country: None (occurrence: None)
  Receive Date: 20120717
  Receipt Date: 20120705
  Transmission Date: 20120928
  Serious: No
  Sender: FDA-Public Use
  Company Number: US-ASTRAZENECA-2010SE31501

PATIENT
  Age: 51 Year
  Sex: Female

DRUGS (1)
  1. NEXIUM [Suspect]
     Route: 048

REACTIONS (7)
  - ACCIDENT [None]
  - MOVEMENT DISORDER [None]
  - PAIN [None]
  - ACCIDENT AT WORK [None]
  - DEPRESSION [None]
  - MENTAL IMPAIRMENT [None]
  - MALAISE [None]
